FAERS Safety Report 22142450 (Version 1)
Quarter: 2023Q1

REPORT INFORMATION
  Report Type: Spontaneous
  Country: US (occurrence: None)
  Receive Date: 20230324
  Receipt Date: 20230324
  Transmission Date: 20230417
  Serious: No
  Sender: FDA-Public Use
  Company Number: None

PATIENT
  Age: 72 Year
  Sex: Female
  Weight: 70.76 kg

DRUGS (10)
  1. IBRANCE [Suspect]
     Active Substance: PALBOCICLIB
     Indication: Breast cancer
     Dosage: OTHER FREQUENCY : 3W, 1W OFF;?
     Route: 048
  2. Allergy Relief [Concomitant]
  3. BIOTIN [Concomitant]
     Active Substance: BIOTIN
  4. MINERALS\VITAMINS [Concomitant]
     Active Substance: MINERALS\VITAMINS
  5. Cranberry [Concomitant]
  6. FISH OIL [Concomitant]
     Active Substance: FISH OIL
  7. NORVASC [Concomitant]
     Active Substance: AMLODIPINE BESYLATE
  8. PERCOCET [Concomitant]
     Active Substance: ACETAMINOPHEN\OXYCODONE HYDROCHLORIDE
  9. Tumeric Complex [Concomitant]
  10. ROSUVASTATIN CALCIUM [Concomitant]
     Active Substance: ROSUVASTATIN CALCIUM

REACTIONS (2)
  - Urinary tract infection [None]
  - Full blood count abnormal [None]
